FAERS Safety Report 10304143 (Version 1)
Quarter: 2014Q3

REPORT INFORMATION
  Report Type: Spontaneous
  Country: US (occurrence: US)
  Receive Date: 20140714
  Receipt Date: 20140714
  Transmission Date: 20150326
  Serious: No
  Sender: FDA-Public Use
  Company Number: US-009507513-1407USA006211

PATIENT
  Sex: Female
  Weight: 99.77 kg

DRUGS (4)
  1. ALBUTEROL SULFATE. [Concomitant]
     Active Substance: ALBUTEROL SULFATE
  2. CLARITIN [Concomitant]
     Active Substance: LORATADINE
  3. IMPLANON [Suspect]
     Active Substance: ETONOGESTREL
     Dosage: UNK
     Route: 059
     Dates: start: 201205
  4. IMPLANON [Suspect]
     Active Substance: ETONOGESTREL
     Indication: CONTRACEPTION
     Dosage: LEFT ARM
     Route: 059
     Dates: start: 201204, end: 201205

REACTIONS (8)
  - Medical device complication [Recovered/Resolved]
  - Drug effect decreased [Unknown]
  - Device difficult to use [Recovered/Resolved]
  - Medical device discomfort [Unknown]
  - Haemorrhage [Recovered/Resolved]
  - Amenorrhoea [Recovered/Resolved]
  - Metrorrhagia [Recovered/Resolved]
  - Overweight [Unknown]

NARRATIVE: CASE EVENT DATE: 2012
